FAERS Safety Report 20687517 (Version 2)
Quarter: 2022Q2

REPORT INFORMATION
  Report Type: Report from Study
  Country: US (occurrence: US)
  Receive Date: 20220408
  Receipt Date: 20220411
  Transmission Date: 20220721
  Serious: Yes (Death, Hospitalization)
  Sender: FDA-Public Use
  Company Number: US-ABBVIE-22K-163-4349600-00

PATIENT
  Age: 75 Year
  Sex: Female
  Weight: 88.530 kg

DRUGS (14)
  1. VENCLEXTA [Suspect]
     Active Substance: VENETOCLAX
     Indication: Chronic lymphocytic leukaemia (in remission)
     Route: 048
     Dates: start: 20210901, end: 20220402
  2. VENCLEXTA [Suspect]
     Active Substance: VENETOCLAX
     Indication: Chemotherapy side effect prophylaxis
  3. SIMVASTATIN [Concomitant]
     Active Substance: SIMVASTATIN
     Indication: Blood cholesterol
     Route: 048
     Dates: end: 20220402
  4. ACYCLOVIR [Concomitant]
     Active Substance: ACYCLOVIR
     Indication: Stomatitis
     Route: 048
     Dates: end: 20220402
  5. ALLOPURINOL [Concomitant]
     Active Substance: ALLOPURINOL
     Indication: Pain
     Route: 048
     Dates: end: 20220402
  6. COMPAZINE [Concomitant]
     Active Substance: PROCHLORPERAZINE MALEATE
     Indication: Nausea
     Route: 048
     Dates: end: 20220402
  7. ZOFRAN [Concomitant]
     Active Substance: ONDANSETRON HYDROCHLORIDE
     Indication: Nausea
     Route: 048
     Dates: end: 20220402
  8. BACTRIM DS [Concomitant]
     Active Substance: SULFAMETHOXAZOLE\TRIMETHOPRIM
     Indication: Infection
     Route: 048
     Dates: end: 20220402
  9. ASPIRIN [Concomitant]
     Active Substance: ASPIRIN
     Indication: Anticoagulant therapy
     Route: 048
     Dates: end: 20220402
  10. GABAPENTIN [Concomitant]
     Active Substance: GABAPENTIN
     Indication: Pain
     Route: 048
     Dates: end: 20220402
  11. LISINOPRIL [Concomitant]
     Active Substance: LISINOPRIL
     Indication: Blood pressure measurement
     Route: 048
     Dates: end: 20220402
  12. FLUOXETINE [Concomitant]
     Active Substance: FLUOXETINE HYDROCHLORIDE
     Indication: Product used for unknown indication
     Route: 048
     Dates: end: 20220402
  13. MOBIC [Concomitant]
     Active Substance: MELOXICAM
     Indication: Inflammation
     Route: 048
     Dates: end: 20220402
  14. METFORMIN [Concomitant]
     Active Substance: METFORMIN HYDROCHLORIDE
     Indication: Diabetes mellitus
     Route: 048
     Dates: end: 20220402

REACTIONS (1)
  - Death [Fatal]

NARRATIVE: CASE EVENT DATE: 20220402
